FAERS Safety Report 8162739 (Version 21)
Quarter: 2015Q1

REPORT INFORMATION
  Report Type: Spontaneous
  Country: IT (occurrence: IT)
  Receive Date: 20110930
  Receipt Date: 20150306
  Transmission Date: 20150721
  Serious: Yes (Hospitalization, Disabling, Other)
  Sender: FDA-Public Use
  Company Number: IT-BIOGENIDEC-2011BI036927

PATIENT
  Age: 28 Year
  Sex: Female
  Weight: 52 kg

DRUGS (1)
  1. TYSABRI [Suspect]
     Active Substance: NATALIZUMAB
     Indication: MULTIPLE SCLEROSIS
     Dates: start: 20090824, end: 20110902

REACTIONS (3)
  - Immune reconstitution inflammatory syndrome [Recovered/Resolved]
  - Progressive multifocal leukoencephalopathy [Recovered/Resolved]
  - Partial seizures [Unknown]

NARRATIVE: CASE EVENT DATE: 20110916
